FAERS Safety Report 6571233-3 (Version None)
Quarter: 2010Q1

REPORT INFORMATION
  Report Type: 
  Country: None (occurrence: None)
  Receive Date: 20100129
  Receipt Date: 20100121
  Transmission Date: 20100710
  Serious: Yes (Death, Life-Threatening, Hospitalization)
  Sender: FDA-Public Use
  Company Number: WAES 0912USA00771

PATIENT
  Age: 77 Year
  Sex: Male

DRUGS (13)
  1. FOSAMAX [Suspect]
     Indication: OSTEOPOROSIS
     Dosage: 30 MG/WKY; PO
     Route: 048
     Dates: start: 20071206
  2. PLETAL [Suspect]
     Indication: CAROTID ARTERY STENOSIS
     Dosage: 100 MG/DAILY; PO
     Route: 048
     Dates: start: 20041202, end: 20080919
  3. 1696 [Suspect]
     Indication: COLITIS ULCERATIVE
     Dosage: 10 MG/DAILY; PO
     Route: 048
     Dates: start: 20040129, end: 20080919
  4. ACECOL [Concomitant]
  5. ASPARA CA [Concomitant]
  6. PRAMIPEXOLE DIHYDROCHLORIDE [Concomitant]
  7. MOHRUS L [Concomitant]
  8. CARBIDOPA AND LEVODOPA [Concomitant]
  9. ROCALTROL [Concomitant]
  10. SALAZOPYRIN [Concomitant]
  11. VOLTAREN [Concomitant]
  12. ZANTAC [Concomitant]
  13. CALCIUM LACTATE [Concomitant]

REACTIONS (2)
  - CEREBRAL HAEMORRHAGE [None]
  - CEREBRAL INFARCTION [None]
